FAERS Safety Report 16969611 (Version 1)
Quarter: 2019Q4

REPORT INFORMATION
  Report Type: Spontaneous
  Country: US (occurrence: US)
  Receive Date: 20190911
  Receipt Date: 20190911
  Transmission Date: 20200122
  Serious: No
  Sender: FDA-Public Use
  Company Number: None

PATIENT
  Age: 48 Year
  Sex: Female
  Weight: 72.57 kg

DRUGS (1)
  1. COLGATE TOTAL SF CLEAN MINT [Suspect]
     Active Substance: STANNOUS FLUORIDE
     Indication: DENTAL DISORDER PROPHYLAXIS
     Dates: start: 20190826, end: 20190907

REACTIONS (4)
  - Product formulation issue [None]
  - Stomatitis [None]
  - Application site ulcer [None]
  - Application site pain [None]

NARRATIVE: CASE EVENT DATE: 20190826
